FAERS Safety Report 20211599 (Version 1)
Quarter: 2021Q4

REPORT INFORMATION
  Report Type: Spontaneous
  Country: US (occurrence: None)
  Receive Date: 20211220
  Receipt Date: 20211220
  Transmission Date: 20220303
  Serious: No
  Sender: FDA-Public Use
  Company Number: None

PATIENT
  Age: 64 Year
  Sex: Female

DRUGS (1)
  1. TAGRISSO [Suspect]
     Active Substance: OSIMERTINIB
     Indication: Lung neoplasm malignant
     Dosage: OTHER QUANTITY : 80 MG #15;?FREQUENCY : DAILY;?
     Route: 048
     Dates: start: 20211130

REACTIONS (2)
  - Diarrhoea [None]
  - Urine analysis abnormal [None]

NARRATIVE: CASE EVENT DATE: 20211130
